FAERS Safety Report 4705683-4 (Version None)
Quarter: 2005Q2

REPORT INFORMATION
  Report Type: 
  Country: None (occurrence: None)
  Receive Date: 20050629
  Receipt Date: 20050610
  Transmission Date: 20051028
  Serious: Yes (Hospitalization)
  Sender: FDA-Public Use
  Company Number: DSA_26546_2005

PATIENT
  Age: 53 Year
  Sex: Male

DRUGS (4)
  1. RENIVACE [Suspect]
     Indication: HYPERTENSION
     Dosage: 5 MG QD PO
     Route: 048
     Dates: start: 20050315, end: 20050503
  2. ASPIRIN [Concomitant]
  3. MARZULENE S [Concomitant]
  4. HERBERSSER R [Concomitant]

REACTIONS (15)
  - ALANINE AMINOTRANSFERASE INCREASED [None]
  - ANGIONEUROTIC OEDEMA [None]
  - ASPARTATE AMINOTRANSFERASE INCREASED [None]
  - BLOOD ALKALINE PHOSPHATASE INCREASED [None]
  - BLOOD LACTATE DEHYDROGENASE INCREASED [None]
  - DISEASE RECURRENCE [None]
  - DYSPHONIA [None]
  - EOSINOPHIL PERCENTAGE DECREASED [None]
  - GAMMA-GLUTAMYLTRANSFERASE INCREASED [None]
  - LARYNGEAL OEDEMA [None]
  - LYMPHOCYTE PERCENTAGE DECREASED [None]
  - MONOCYTE PERCENTAGE DECREASED [None]
  - NEUTROPHIL PERCENTAGE INCREASED [None]
  - PLATELET COUNT DECREASED [None]
  - WHITE BLOOD CELL COUNT INCREASED [None]
